FAERS Safety Report 16276588 (Version 1)
Quarter: 2019Q2

REPORT INFORMATION
  Report Type: Spontaneous
  Country: US (occurrence: US)
  Receive Date: 20190505
  Receipt Date: 20190505
  Transmission Date: 20190711
  Serious: No
  Sender: FDA-Public Use
  Company Number: None

PATIENT
  Age: 32 Year
  Sex: Female
  Weight: 72.6 kg

DRUGS (7)
  1. PROCHLORPERAZINE 5 MG IV [Concomitant]
     Dates: start: 20180518, end: 20180518
  2. ONDANSETRON ODT 4 MG [Concomitant]
     Dates: start: 20180518, end: 20180518
  3. CABERGOLINE. [Suspect]
     Active Substance: CABERGOLINE
     Indication: PROLACTIN-PRODUCING PITUITARY TUMOUR
     Route: 048
  4. SUMATRIPTAN. [Suspect]
     Active Substance: SUMATRIPTAN
     Indication: NAUSEA
     Dosage: ?          OTHER FREQUENCY:ONCE;?
     Route: 058
     Dates: start: 20180518, end: 20180518
  5. KETOROLAC 60 MG IM [Concomitant]
     Dates: start: 20180518, end: 20180518
  6. DIPHENHYDRAMINE 25MG [Concomitant]
     Active Substance: DIPHENHYDRAMINE
     Dates: start: 20180518, end: 20180518
  7. GADOBENATE DIMEGLUMINE 15 ML [Concomitant]
     Dates: start: 20180518, end: 20180518

REACTIONS (4)
  - Headache [None]
  - Photophobia [None]
  - Drug interaction [None]
  - Nausea [None]

NARRATIVE: CASE EVENT DATE: 20180518
